FAERS Safety Report 11445731 (Version 1)
Quarter: 2015Q3

REPORT INFORMATION
  Report Type: Spontaneous
  Country: US (occurrence: None)
  Receive Date: 20150901
  Receipt Date: 20150901
  Transmission Date: 20151125
  Serious: Yes (Other)
  Sender: FDA-Public Use
  Company Number: None

PATIENT
  Sex: Female
  Weight: 44.4 kg

DRUGS (1)
  1. ZONISAMIDE 10MG/ML [Suspect]
     Active Substance: ZONISAMIDE
     Indication: PARTIAL SEIZURES
     Route: 048
     Dates: start: 201109

REACTIONS (3)
  - Headache [None]
  - Abnormal behaviour [None]
  - Product substitution issue [None]
